FAERS Safety Report 11324019 (Version 1)
Quarter: 2015Q3

REPORT INFORMATION
  Report Type: Spontaneous
  Country: US (occurrence: US)
  Receive Date: 20150730
  Receipt Date: 20150730
  Transmission Date: 20151125
  Serious: No
  Sender: FDA-Public Use
  Company Number: GXBR2015US001758

PATIENT
  Sex: Male

DRUGS (4)
  1. AMOXICILLIN AND CLAVULANATE POTASSIUM TABLETS USP [Suspect]
     Active Substance: AMOXICILLIN\CLAVULANATE POTASSIUM
     Indication: ANIMAL BITE
     Dosage: UNK DF, UNK
     Route: 065
     Dates: start: 20150527, end: 20150606
  2. COLCHICINE. [Concomitant]
     Active Substance: COLCHICINE
     Indication: RENAL DISORDER
     Dosage: UNK DF, UNK
  3. NAPROXEN. [Concomitant]
     Active Substance: NAPROXEN
     Indication: RENAL DISORDER
     Dosage: UNK DF, UNK
  4. AMOXICILLIN AND CLAVULANATE POTASSIUM TABLETS USP [Suspect]
     Active Substance: AMOXICILLIN\CLAVULANATE POTASSIUM
     Indication: PROPHYLAXIS

REACTIONS (2)
  - Gout [Not Recovered/Not Resolved]
  - Pain [Not Recovered/Not Resolved]
